FAERS Safety Report 21792677 (Version 1)
Quarter: 2022Q4

REPORT INFORMATION
  Report Type: Spontaneous
  Country: US (occurrence: None)
  Receive Date: 20221229
  Receipt Date: 20221229
  Transmission Date: 20230113
  Serious: No
  Sender: FDA-Public Use
  Company Number: 2022A412227

PATIENT
  Age: 61 Year
  Sex: Female
  Weight: 92.5 kg

DRUGS (2)
  1. DALIRESP [Suspect]
     Active Substance: ROFLUMILAST
     Indication: Chronic obstructive pulmonary disease
     Route: 048
     Dates: start: 2017
  2. DALIRESP [Suspect]
     Active Substance: ROFLUMILAST
     Indication: Emphysema
     Route: 048
     Dates: start: 2017

REACTIONS (3)
  - Dyspnoea [Unknown]
  - Product use issue [Unknown]
  - Intentional dose omission [Unknown]

NARRATIVE: CASE EVENT DATE: 20170101
